FAERS Safety Report 12294542 (Version 1)
Quarter: 2016Q2

REPORT INFORMATION
  Report Type: Other
  Country: CH (occurrence: CH)
  Receive Date: 20160422
  Receipt Date: 20160422
  Transmission Date: 20160815
  Serious: Yes (Other)
  Sender: FDA-Public Use
  Company Number: CH-KNIGHT THERAPEUTICS (USA) INC.-1050867

PATIENT
  Age: 64 Year
  Sex: Female

DRUGS (1)
  1. IMPAVIDO [Suspect]
     Active Substance: MILTEFOSINE
     Indication: MUCOCUTANEOUS LEISHMANIASIS
     Route: 065

REACTIONS (6)
  - Vomiting [Recovered/Resolved]
  - Off label use [Unknown]
  - Renal impairment [Recovered/Resolved]
  - Dehydration [Recovered/Resolved]
  - Hypokalaemia [Recovered/Resolved]
  - Nausea [Recovered/Resolved]
